FAERS Safety Report 21466320 (Version 1)
Quarter: 2022Q4

REPORT INFORMATION
  Report Type: Spontaneous
  Country: US (occurrence: None)
  Receive Date: 20221015
  Receipt Date: 20221015
  Transmission Date: 20230113
  Serious: No
  Sender: FDA-Public Use
  Company Number: None

PATIENT
  Sex: Female

DRUGS (1)
  1. PROTONIX [Suspect]
     Active Substance: PANTOPRAZOLE SODIUM

REACTIONS (8)
  - Palpitations [None]
  - Incorrect dose administered [None]
  - Anxiety [None]
  - Panic attack [None]
  - Decreased appetite [None]
  - Weight decreased [None]
  - Depressed level of consciousness [None]
  - Feeling abnormal [None]

NARRATIVE: CASE EVENT DATE: 20220901
